FAERS Safety Report 24989866 (Version 1)
Quarter: 2025Q1

REPORT INFORMATION
  Report Type: Spontaneous
  Country: IT (occurrence: IT)
  Receive Date: 20250220
  Receipt Date: 20250220
  Transmission Date: 20250409
  Serious: Yes (Death, Hospitalization, Other)
  Sender: HIKMA
  Company Number: None

PATIENT

DRUGS (3)
  1. CYCLOPHOSPHAMIDE [Suspect]
     Active Substance: CYCLOPHOSPHAMIDE
     Indication: Breast cancer
     Route: 042
     Dates: start: 20230718, end: 20230718
  2. DOCETAXEL [Suspect]
     Active Substance: DOCETAXEL
     Indication: Breast cancer
     Route: 042
     Dates: start: 20230718, end: 20230718
  3. ENALAPRIL IDROCLOROTIAZIDE EG [Concomitant]
     Indication: Hypertension
     Route: 065

REACTIONS (1)
  - Necrotising colitis [Fatal]

NARRATIVE: CASE EVENT DATE: 20230727
